FAERS Safety Report 5834906-3 (Version None)
Quarter: 2008Q3

REPORT INFORMATION
  Report Type: 
  Country: None (occurrence: None)
  Receive Date: 20080804
  Receipt Date: 20070822
  Transmission Date: 20090109
  Serious: Yes (Hospitalization)
  Sender: FDA-Public Use
  Company Number: 000612

PATIENT
  Age: 58 Year
  Sex: Male

DRUGS (9)
  1. BUSULFEX [Suspect]
     Indication: STEM CELL TRANSPLANT
     Dosage: 27 ML, INTRAVENOUS ; 36 ML, DAILY DOSE; INTRAVENOUS ;  9 ML, DAILY DOSE; INTRAVENOUS
     Route: 042
     Dates: start: 20070413, end: 20070413
  2. BUSULFEX [Suspect]
     Indication: STEM CELL TRANSPLANT
     Dosage: 27 ML, INTRAVENOUS ; 36 ML, DAILY DOSE; INTRAVENOUS ;  9 ML, DAILY DOSE; INTRAVENOUS
     Route: 042
     Dates: start: 20070414, end: 20070414
  3. BUSULFEX [Suspect]
     Indication: STEM CELL TRANSPLANT
     Dosage: 27 ML, INTRAVENOUS ; 36 ML, DAILY DOSE; INTRAVENOUS ;  9 ML, DAILY DOSE; INTRAVENOUS
     Route: 042
     Dates: start: 20070415, end: 20070415
  4. FILGRASTIM (FILGRASTIM) [Concomitant]
  5. VALPROATE SODIUM [Concomitant]
  6. FLUDARABINE PHOSPHATE [Concomitant]
  7. METHOTREXATE [Concomitant]
  8. CYCLOSPORINE [Concomitant]
  9. FOSCARNET SODIUM [Concomitant]

REACTIONS (6)
  - ACUTE GRAFT VERSUS HOST DISEASE [None]
  - ANOREXIA [None]
  - DIARRHOEA [None]
  - GAMMA-GLUTAMYLTRANSFERASE INCREASED [None]
  - STAPHYLOCOCCAL SEPSIS [None]
  - STOMATITIS [None]
